FAERS Safety Report 10601868 (Version 2)
Quarter: 2014Q4

REPORT INFORMATION
  Report Type: Spontaneous
  Country: CA (occurrence: CA)
  Receive Date: 20141124
  Receipt Date: 20141229
  Transmission Date: 20150529
  Serious: Yes (Other)
  Sender: FDA-Public Use
  Company Number: CA-BAXTER-2014BAX067916

PATIENT
  Age: 79 Year
  Sex: Male
  Weight: 64.5 kg

DRUGS (6)
  1. GAMMAGARD LIQUID [Suspect]
     Active Substance: HUMAN IMMUNOGLOBULIN G
     Indication: DEMYELINATING POLYNEUROPATHY
     Dosage: 4/4
     Route: 042
     Dates: start: 20130503, end: 20130503
  2. GAMMAGARD LIQUID [Suspect]
     Active Substance: HUMAN IMMUNOGLOBULIN G
     Indication: OFF LABEL USE
     Dosage: 4/4
     Route: 042
     Dates: start: 20130505, end: 20130505
  3. GAMMAGARD LIQUID [Suspect]
     Active Substance: HUMAN IMMUNOGLOBULIN G
     Dosage: 4/4
     Route: 042
     Dates: start: 20130505, end: 20130505
  4. PRIVIGEN [Suspect]
     Active Substance: HUMAN IMMUNOGLOBULIN G
     Indication: DEMYELINATING POLYNEUROPATHY
     Dosage: 4/4
     Route: 042
     Dates: start: 20130504, end: 20130504
  5. PRIVIGEN [Suspect]
     Active Substance: HUMAN IMMUNOGLOBULIN G
     Dosage: 4/4
     Route: 042
     Dates: start: 20130504, end: 20130504
  6. GAMUNEX [Suspect]
     Active Substance: HUMAN IMMUNOGLOBULIN G
     Indication: DEMYELINATING POLYNEUROPATHY
     Dosage: 4/4
     Route: 042
     Dates: start: 20130506, end: 20130506

REACTIONS (1)
  - Haemolysis [Unknown]

NARRATIVE: CASE EVENT DATE: 20140506
